FAERS Safety Report 10947584 (Version 1)
Quarter: 2015Q1

REPORT INFORMATION
  Report Type: Spontaneous
  Country: US (occurrence: US)
  Receive Date: 20150323
  Receipt Date: 20150323
  Transmission Date: 20150721
  Serious: No
  Sender: FDA-Public Use
  Company Number: US-BAUSCH-SYM-2014-16115

PATIENT
  Sex: Female

DRUGS (2)
  1. XENAZINE [Suspect]
     Active Substance: TETRABENAZINE
     Indication: MEIGE^S SYNDROME
     Dosage: 1 TABLET, TWICE DAILY
     Route: 048
     Dates: start: 20130825
  2. XENAZINE [Suspect]
     Active Substance: TETRABENAZINE
     Indication: DIVERTICULITIS

REACTIONS (1)
  - Ocular hyperaemia [Unknown]
